FAERS Safety Report 8294221-8 (Version None)
Quarter: 2012Q2

REPORT INFORMATION
  Report Type: 
  Country: None (occurrence: None)
  Receive Date: 20120418
  Receipt Date: 20120416
  Transmission Date: 20120825
  Serious: Yes (Other)
  Sender: FDA-Public Use
  Company Number: PHHY2012GB017122

PATIENT
  Age: 75 Year
  Sex: Male

DRUGS (13)
  1. PREDNISOLONE [Suspect]
     Indication: CHRONIC OBSTRUCTIVE PULMONARY DISEASE
  2. ALBUTEROL [Suspect]
  3. SPIRIVA [Concomitant]
  4. SYMBICORT [Concomitant]
  5. RAMIPRIL [Suspect]
  6. WARFARIN [Suspect]
     Indication: ATRIAL FIBRILLATION
  7. FORMOTEROL FUMARATE [Suspect]
  8. CYSTEINE [Suspect]
  9. FORMOTEROL FUMARATE [Suspect]
  10. METFORMIN HCL [Suspect]
  11. VERAPAMIL [Suspect]
     Indication: ATRIAL FIBRILLATION
  12. FUROSEMIDE [Suspect]
  13. ATORVASTATIN [Suspect]

REACTIONS (1)
  - HALLUCINATION [None]
